FAERS Safety Report 5870731-5 (Version None)
Quarter: 2008Q3

REPORT INFORMATION
  Report Type: 
  Country: None (occurrence: None)
  Receive Date: 20080904
  Receipt Date: 20080820
  Transmission Date: 20090109
  Serious: Yes (Other)
  Sender: FDA-Public Use
  Company Number: JP-ASTRAZENECA-2008SE04177

PATIENT
  Age: 84 Year
  Sex: Female

DRUGS (4)
  1. AMIAS 32MG TABLETS [Suspect]
     Route: 048
  2. AMLODIPINE [Concomitant]
     Route: 065
  3. ISOSORBIDE DINITRATE [Concomitant]
     Route: 065
  4. NICORANDIL [Concomitant]
     Route: 065

REACTIONS (1)
  - JAUNDICE CHOLESTATIC [None]
